FAERS Safety Report 14182769 (Version 1)
Quarter: 2017Q4

REPORT INFORMATION
  Report Type: Spontaneous
  Country: US (occurrence: US)
  Receive Date: 20171113
  Receipt Date: 20171113
  Transmission Date: 20180321
  Serious: Yes (Hospitalization)
  Sender: FDA-Public Use
  Company Number: US-LPDUSPRD-20171517

PATIENT
  Age: 16 Year
  Sex: Female

DRUGS (3)
  1. SODIUM ACETATE INJECTION, USP (5023-25) [Suspect]
     Active Substance: SODIUM ACETATE
     Dosage: 150 MEQ IN 1 L OF 5% DEXTROSE
     Route: 042
  2. SODIUM BICARBONATE INJECTION, USP (1550-25) [Suspect]
     Active Substance: SODIUM BICARBONATE
     Dosage: 100-MEQ
     Route: 040
  3. DEXTROSE. [Concomitant]
     Active Substance: DEXTROSE
     Dosage: 1 L
     Route: 042

REACTIONS (4)
  - Pneumonia [Unknown]
  - Acute respiratory distress syndrome [Unknown]
  - Hypokalaemia [Unknown]
  - Hypotension [Unknown]
